FAERS Safety Report 6601633-4 (Version None)
Quarter: 2010Q1

REPORT INFORMATION
  Report Type: 
  Country: None (occurrence: None)
  Receive Date: 20100225
  Receipt Date: 20100212
  Transmission Date: 20100710
  Serious: Yes (Death, Hospitalization)
  Sender: FDA-Public Use
  Company Number: SK-ROCHE-677042

PATIENT
  Sex: Female
  Weight: 57 kg

DRUGS (18)
  1. TOCILIZUMAB [Suspect]
     Indication: RHEUMATOID ARTHRITIS
     Dosage: FORM: INFUSION, LAST 3 DOSES OF TOCILIZUMAB,  29 OCT 2009, 27 NOV 2009, 29 DEC 2009. INTERUPPTED.
     Route: 042
     Dates: start: 20091029, end: 20091229
  2. ISONIAZID [Suspect]
     Indication: DRUG USE FOR UNKNOWN INDICATION
     Route: 065
     Dates: start: 20090724
  3. ISONIAZID [Suspect]
     Route: 065
     Dates: start: 20090824, end: 20091229
  4. METOJECT [Concomitant]
     Dates: start: 20080101
  5. FOLIC ACID [Concomitant]
     Dates: start: 19990629
  6. PREDNISOLON [Concomitant]
     Dates: start: 19990629
  7. NOVALGIN [Concomitant]
     Dates: start: 20080101
  8. CALTRATE PLUS [Concomitant]
     Dates: start: 20060724
  9. RISEDROSS [Concomitant]
     Dates: start: 20030120
  10. PREDUCTAL [Concomitant]
     Dosage: DRUG: PREDUCTAL MR
     Dates: start: 20060724
  11. CORYOL [Concomitant]
     Dates: start: 20091002
  12. MALTOFER FOL [Concomitant]
     Dates: start: 20060703
  13. PK-MERZ [Concomitant]
     Dates: start: 20071112
  14. OPRAZOL [Concomitant]
     Dates: start: 20081028
  15. CLEXANE [Concomitant]
     Dates: start: 20081110
  16. PYRIDOXIN [Concomitant]
     Dates: start: 20091128
  17. ARNETIN [Concomitant]
     Dates: start: 20091229, end: 20100101
  18. FRAXIPARINE [Concomitant]

REACTIONS (5)
  - BRONCHOPNEUMONIA [None]
  - CEREBRAL INFARCTION [None]
  - DUODENAL ULCER [None]
  - RENAL FAILURE ACUTE [None]
  - VASCULITIS [None]
